FAERS Safety Report 9674836 (Version 1)
Quarter: 2013Q4

REPORT INFORMATION
  Report Type: Spontaneous
  Country: US (occurrence: None)
  Receive Date: 20131106
  Receipt Date: 20131106
  Transmission Date: 20140711
  Serious: Yes (Death, Hospitalization, Other)
  Sender: FDA-Public Use
  Company Number: None

PATIENT
  Age: 50 Year
  Sex: Male
  Weight: 50 kg

DRUGS (2)
  1. TECFIDERA [Suspect]
     Indication: MULTIPLE SCLEROSIS RELAPSE
     Dosage: 1 TABLET
     Route: 048
  2. SOLUMEDROL [Concomitant]

REACTIONS (3)
  - Pyrexia [None]
  - Coma [None]
  - West Nile viral infection [None]
